FAERS Safety Report 13611059 (Version 2)
Quarter: 2017Q2

REPORT INFORMATION
  Report Type: Report from Study
  Country: GB (occurrence: GB)
  Receive Date: 20170605
  Receipt Date: 20170609
  Transmission Date: 20170830
  Serious: Yes (Hospitalization, Other)
  Sender: FDA-Public Use
  Company Number: PHHO2017GB008635

PATIENT
  Age: 77 Year
  Sex: Male

DRUGS (11)
  1. CHLORPHENAMINE [Concomitant]
     Active Substance: CHLORPHENIRAMINE MALEATE
     Indication: CHRONIC LYMPHOCYTIC LEUKAEMIA
     Dosage: 10 MG, UNK
     Route: 042
     Dates: start: 20161013, end: 20170309
  2. ACICLOVIR [Concomitant]
     Active Substance: ACYCLOVIR
     Indication: CHRONIC LYMPHOCYTIC LEUKAEMIA
     Dosage: 400 MG, UNK
     Route: 048
     Dates: start: 20161013, end: 20170515
  3. COMPARATOR BENDAMUSTINE [Suspect]
     Active Substance: BENDAMUSTINE
     Indication: CHRONIC LYMPHOCYTIC LEUKAEMIA
     Dosage: 150 MG, UNK
     Route: 042
     Dates: start: 20161014, end: 20170310
  4. NO TREATMENT RECEIVED [Suspect]
     Active Substance: UNSPECIFIED INGREDIENT
     Indication: CHRONIC LYMPHOCYTIC LEUKAEMIA
     Dosage: NO TREATMENT
     Route: 065
  5. HYDROCORTISON [Concomitant]
     Active Substance: HYDROCORTISONE
     Indication: CHRONIC LYMPHOCYTIC LEUKAEMIA
     Dosage: 100 MG, UNK
     Route: 042
     Dates: start: 20151013, end: 20170309
  6. PARACETAMOL [Concomitant]
     Active Substance: ACETAMINOPHEN
     Indication: CHRONIC LYMPHOCYTIC LEUKAEMIA
     Dosage: 1000 MG, UNK
     Route: 048
     Dates: start: 20161013
  7. COTRIMOXAZOLE [Concomitant]
     Active Substance: SULFAMETHOXAZOLE\TRIMETHOPRIM
     Indication: CHRONIC LYMPHOCYTIC LEUKAEMIA
     Dosage: 480 MG, UNK
     Route: 048
     Dates: start: 20161013, end: 20170321
  8. OFATUMUMAB [Suspect]
     Active Substance: OFATUMUMAB
     Indication: CHRONIC LYMPHOCYTIC LEUKAEMIA
     Dosage: 1000 MG, UNK
     Route: 042
     Dates: start: 20161013, end: 20170309
  9. METOCLOPRAMIDE. [Concomitant]
     Active Substance: METOCLOPRAMIDE
     Indication: CHRONIC LYMPHOCYTIC LEUKAEMIA
     Dosage: 8 MG, UNK
     Route: 042
     Dates: start: 20161013, end: 20170310
  10. ALLOPURINOL. [Concomitant]
     Active Substance: ALLOPURINOL
     Indication: CHRONIC LYMPHOCYTIC LEUKAEMIA
     Dosage: 100 MG, UNK
     Route: 048
     Dates: start: 20161013, end: 20170321
  11. G-CSF [Concomitant]
     Active Substance: GRANULOCYTE COLONY-STIMULATING FACTOR NOS
     Indication: CHRONIC LYMPHOCYTIC LEUKAEMIA
     Dosage: 300 MG, UNK
     Route: 058
     Dates: start: 20170317, end: 20170321

REACTIONS (2)
  - Pneumonitis [Not Recovered/Not Resolved]
  - Upper gastrointestinal haemorrhage [Not Recovered/Not Resolved]

NARRATIVE: CASE EVENT DATE: 20170518
